FAERS Safety Report 9054756 (Version 2)
Quarter: 2013Q4

REPORT INFORMATION
  Report Type: Spontaneous
  Country: IT (occurrence: IT)
  Receive Date: 20130208
  Receipt Date: 20131204
  Transmission Date: 20140711
  Serious: Yes (Hospitalization)
  Sender: FDA-Public Use
  Company Number: IT-PFIZER INC-2013042222

PATIENT
  Age: 56 Year
  Sex: Female

DRUGS (6)
  1. VENLAFAXINE HCL [Suspect]
     Dosage: 21 DF, TOTAL DOSE
     Route: 048
     Dates: start: 20120805, end: 20120805
  2. LEXOTAN [Suspect]
     Dosage: 51 DF, TOTAL DOSE
     Route: 048
     Dates: start: 20120805, end: 20120805
  3. PATROL [Suspect]
     Dosage: 4 DF, TOTAL DOSE
     Route: 048
     Dates: start: 20120805, end: 20120805
  4. MOMENT 200 [Suspect]
     Dosage: 18 DF, TOTAL DOSE
     Route: 048
     Dates: start: 20120805, end: 20120805
  5. CIPRALEX [Suspect]
     Dosage: 18 MG, TOTAL DOSE
     Route: 048
     Dates: start: 20120805, end: 20120805
  6. PARACETAMOL [Suspect]
     Dosage: 28 DF,TOTAL DOSE
     Route: 048
     Dates: start: 20120805, end: 20120805

REACTIONS (4)
  - Intentional overdose [Recovering/Resolving]
  - Respiratory acidosis [Recovering/Resolving]
  - Respiratory depression [Recovering/Resolving]
  - Sopor [Recovering/Resolving]
